FAERS Safety Report 9891242 (Version 1)
Quarter: 2014Q1

REPORT INFORMATION
  Report Type: Spontaneous
  Country: US (occurrence: None)
  Receive Date: 20140211
  Receipt Date: 20140211
  Transmission Date: 20141002
  Serious: No
  Sender: FDA-Public Use
  Company Number: None

PATIENT
  Age: 30 Year
  Sex: Female
  Weight: 74.84 kg

DRUGS (1)
  1. BUPROPION [Suspect]
     Indication: SEASONAL AFFECTIVE DISORDER
     Dosage: 4 MONTHS 1 PILL ONCE DAILY TAKEN BY MOUTH
     Route: 048

REACTIONS (3)
  - Anxiety [None]
  - Restlessness [None]
  - Panic attack [None]
